FAERS Safety Report 4575105-5 (Version None)
Quarter: 2005Q1

REPORT INFORMATION
  Report Type: 
  Country: None (occurrence: None)
  Receive Date: 20050208
  Receipt Date: 20050118
  Transmission Date: 20050727
  Serious: Yes (Death, Hospitalization)
  Sender: FDA-Public Use
  Company Number: GB-SANOFI-SYNTHELABO-F01200500105

PATIENT
  Sex: Male

DRUGS (2)
  1. CAPECITABINE [Suspect]
     Dosage: 1800 MG (1000 MG/M2 TWICE A DAY GIVEN ORALLY FOR 14 DAYS FOLLOWED BY 7 DAYS REST, Q3W)
     Route: 048
     Dates: start: 20041230, end: 20050112
  2. OXALIPLATIN [Suspect]
     Route: 042
     Dates: start: 20041230, end: 20041230

REACTIONS (4)
  - ARRHYTHMIA [None]
  - CARDIAC ARREST [None]
  - PHLEBOTHROMBOSIS [None]
  - PULMONARY EMBOLISM [None]
